FAERS Safety Report 9222333 (Version 1)
Quarter: 2013Q1

REPORT INFORMATION
  Report Type: Spontaneous
  Country: US (occurrence: None)
  Receive Date: 20120914
  Receipt Date: 20120914
  Transmission Date: 20140127
  Serious: Yes (Other)
  Sender: FDA-Public Use
  Company Number: JPI-P-015968

PATIENT
  Age: 43 Year
  Sex: Female
  Weight: 82.56 kg

DRUGS (6)
  1. XYREM [Suspect]
     Indication: NARCOLEPSY
     Route: 048
     Dates: start: 20110624, end: 20110708
  2. XYREM [Suspect]
     Indication: SOMNOLENCE
     Route: 048
     Dates: start: 20110624, end: 20110708
  3. EZXETIMIBE AND SIMVASTATIN [Concomitant]
  4. SERTRALINE HYDROCHLORIDE [Concomitant]
  5. LORATADINE [Concomitant]
  6. PRAMIPEXOLE [Concomitant]

REACTIONS (9)
  - Blood pressure increased [None]
  - Urine ketone body [None]
  - Headache [None]
  - Diarrhoea [None]
  - Nausea [None]
  - Weight decreased [None]
  - Dysgeusia [None]
  - Eructation [None]
  - Flatulence [None]
